FAERS Safety Report 10742690 (Version 2)
Quarter: 2015Q2

REPORT INFORMATION
  Report Type: Spontaneous
  Country: US (occurrence: US)
  Receive Date: 20150127
  Receipt Date: 20150428
  Transmission Date: 20150821
  Serious: Yes (Other)
  Sender: FDA-Public Use
  Company Number: US-ASTELLAS-2015US002359

PATIENT
  Age: 81 Year
  Sex: Male

DRUGS (1)
  1. XTANDI [Suspect]
     Active Substance: ENZALUTAMIDE
     Indication: PROSTATE CANCER
     Dosage: 80 MG (2 CAPSULESX40MG), ONCE DAILY
     Route: 048

REACTIONS (8)
  - Asthenia [Unknown]
  - Atrial fibrillation [Unknown]
  - Nausea [Unknown]
  - Transient ischaemic attack [Unknown]
  - Headache [Unknown]
  - Back pain [Unknown]
  - Intentional product use issue [Unknown]
  - Amnesia [Unknown]

NARRATIVE: CASE EVENT DATE: 201404
